FAERS Safety Report 5891530-4 (Version None)
Quarter: 2008Q3

REPORT INFORMATION
  Report Type: 
  Country: None (occurrence: None)
  Receive Date: 20080922
  Receipt Date: 20080909
  Transmission Date: 20090109
  Serious: Yes (Other)
  Sender: FDA-Public Use
  Company Number: CO-ROCHE-585554

PATIENT
  Sex: Female
  Weight: 69 kg

DRUGS (1)
  1. BONIVA [Suspect]
     Indication: OSTEOPOROSIS
     Dosage: FREQUENCY REPORTED AS QUATERLY FORMULATION: SYRINGE
     Route: 042
     Dates: start: 20080906

REACTIONS (4)
  - ARRHYTHMIA [None]
  - BRADYCARDIA [None]
  - CHEST PAIN [None]
  - INFLUENZA LIKE ILLNESS [None]
